FAERS Safety Report 10899477 (Version 2)
Quarter: 2015Q1

REPORT INFORMATION
  Report Type: Spontaneous
  Country: US (occurrence: US)
  Receive Date: 20150309
  Receipt Date: 20150327
  Transmission Date: 20150721
  Serious: No
  Sender: FDA-Public Use
  Company Number: US-PFIZER INC-2015080787

PATIENT
  Age: 73 Year
  Sex: Female

DRUGS (1)
  1. IBRANCE [Suspect]
     Active Substance: PALBOCICLIB
     Indication: BREAST CANCER
     Dosage: 125 MG, CYCLIC DAILY (21DAYS/OFF 7DAYS)
     Dates: start: 20150227

REACTIONS (3)
  - Stomatitis [Unknown]
  - Dizziness [Unknown]
  - Oropharyngeal pain [Unknown]
